FAERS Safety Report 4409907-2 (Version None)
Quarter: 2004Q3

REPORT INFORMATION
  Report Type: 
  Country: None (occurrence: None)
  Receive Date: 20040728
  Receipt Date: 20040614
  Transmission Date: 20050211
  Serious: Yes (Life-Threatening)
  Sender: FDA-Public Use
  Company Number: CA-GLAXOSMITHKLINE-A0515029A

PATIENT
  Age: 55 Year
  Sex: Male
  Weight: 109.1 kg

DRUGS (8)
  1. AVANDIA [Suspect]
     Indication: ILL-DEFINED DISORDER
     Route: 048
     Dates: start: 20000612, end: 20030929
  2. AVAPRO [Concomitant]
     Dosage: 150MG PER DAY
     Route: 048
     Dates: start: 20020619
  3. DIABETA [Concomitant]
     Dates: start: 19970101
  4. LIPITOR [Concomitant]
     Dosage: 10MG PER DAY
     Route: 048
     Dates: start: 20000612
  5. ASPIRIN [Concomitant]
     Dosage: 80MG PER DAY
     Route: 048
     Dates: start: 20001211
  6. ALTACE [Concomitant]
     Dosage: 10MG PER DAY
     Route: 048
     Dates: start: 20021002
  7. GLUCOPHAGE [Concomitant]
     Route: 048
     Dates: start: 19970908
  8. TIAZAC [Concomitant]
     Dosage: 240MG PER DAY
     Dates: start: 20030707

REACTIONS (1)
  - PULMONARY FIBROSIS [None]
